FAERS Safety Report 7504639-6 (Version None)
Quarter: 2011Q2

REPORT INFORMATION
  Report Type: 
  Country: None (occurrence: None)
  Receive Date: 20110525
  Receipt Date: 20110331
  Transmission Date: 20111010
  Serious: Yes (Other)
  Sender: FDA-Public Use
  Company Number: US-AMGEN-USASP2011016376

PATIENT
  Age: 82 Year
  Sex: Male
  Weight: 77 kg

DRUGS (7)
  1. DIGOXIN [Concomitant]
  2. LIPITOR [Concomitant]
     Dosage: 80 MG, QD
     Route: 048
  3. PROCRIT [Concomitant]
     Indication: PRODUCT USED FOR UNKNOWN INDICATION
     Dosage: 40000 UNIT, QWK
     Route: 058
  4. LISINOPRIL [Concomitant]
     Dosage: 10 MG, QD
     Route: 048
  5. METOPROLOL TARTRATE [Concomitant]
     Dosage: 200 MG, QD
     Route: 048
  6. NPLATE [Suspect]
     Indication: MYELODYSPLASTIC SYNDROME
     Dates: start: 20110126, end: 20110325
  7. NPLATE [Suspect]
     Indication: PRODUCT USED FOR UNKNOWN INDICATION
     Dosage: 6 A?G/KG, QWK
     Route: 058
     Dates: start: 20110128, end: 20110318

REACTIONS (1)
  - DRUG INEFFECTIVE [None]
